FAERS Safety Report 25625547 (Version 1)
Quarter: 2025Q3

REPORT INFORMATION
  Report Type: Spontaneous
  Country: KR (occurrence: KR)
  Receive Date: 20250731
  Receipt Date: 20250731
  Transmission Date: 20251020
  Serious: Yes (Hospitalization)
  Sender: MERCK SHARP & DOHME LLC
  Company Number: KR-BAYER-2025A083626

PATIENT
  Age: 84 Year
  Sex: Male
  Weight: 56 kg

DRUGS (18)
  1. VERQUVO [Suspect]
     Active Substance: VERICIGUAT
     Indication: Heart failure with reduced ejection fraction
     Dosage: 5 MG, QD
     Route: 048
     Dates: start: 20250114
  2. VERQUVO [Suspect]
     Active Substance: VERICIGUAT
     Indication: Heart failure with reduced ejection fraction
     Dosage: 2.5 MG, QD
     Route: 048
     Dates: start: 20240806, end: 20250113
  3. Esomezol [Concomitant]
     Indication: Prophylaxis against gastrointestinal ulcer
     Route: 048
     Dates: start: 20240806
  4. ULINASTATIN [Concomitant]
     Active Substance: ULINASTATIN
     Indication: Heart failure with reduced ejection fraction
     Route: 042
     Dates: start: 20250523, end: 20250523
  5. CALCIUM CARBONATE [Concomitant]
     Active Substance: CALCIUM CARBONATE
     Indication: Prophylaxis against gastrointestinal ulcer
     Route: 048
     Dates: start: 20230827
  6. ELIQUIS [Concomitant]
     Active Substance: APIXABAN
     Indication: Cerebrovascular accident prophylaxis
     Route: 048
     Dates: start: 20250524
  7. ALDACTONE [Concomitant]
     Active Substance: SPIRONOLACTONE
     Indication: Heart failure with reduced ejection fraction
     Route: 048
     Dates: start: 20230823
  8. CARVEDILOL [Concomitant]
     Active Substance: CARVEDILOL
     Indication: Hypertension
     Route: 048
     Dates: start: 20230808
  9. JARDIANCE [Concomitant]
     Active Substance: EMPAGLIFLOZIN
     Indication: Heart failure with reduced ejection fraction
     Route: 048
     Dates: start: 20240206
  10. Muratic [Concomitant]
     Indication: Sputum test
     Route: 042
     Dates: start: 20250523, end: 20250523
  11. LIPITOR [Concomitant]
     Active Substance: ATORVASTATIN CALCIUM
     Indication: Arteriosclerosis
     Route: 048
     Dates: start: 20250523
  12. ENTRESTO [Concomitant]
     Active Substance: SACUBITRIL\VALSARTAN
     Route: 048
     Dates: start: 20230828
  13. TEGOPRAZAN [Concomitant]
     Active Substance: TEGOPRAZAN
     Indication: Prophylaxis against gastrointestinal ulcer
     Dates: start: 20250523
  14. LASIX [Concomitant]
     Active Substance: FUROSEMIDE
     Indication: Heart failure with reduced ejection fraction
     Route: 042
     Dates: start: 20240806, end: 20240806
  15. DILTIAZEM HYDROCHLORIDE [Concomitant]
     Active Substance: DILTIAZEM HYDROCHLORIDE
     Indication: Hypertension
     Route: 042
     Dates: start: 20250524, end: 20250525
  16. FOLIC ACID [Concomitant]
     Active Substance: FOLIC ACID
     Indication: Anaemia prophylaxis
     Route: 048
     Dates: start: 20250526
  17. CEREBROLYSIN [Concomitant]
     Active Substance: CEREBROLYSIN
     Indication: Cerebral infarction
     Route: 042
     Dates: start: 20250523, end: 20250529
  18. Riroxia [Concomitant]
     Indication: Atrial fibrillation
     Route: 048
     Dates: start: 20230808

REACTIONS (1)
  - Cerebral infarction [Recovered/Resolved]

NARRATIVE: CASE EVENT DATE: 20250523
